FAERS Safety Report 8492467-7 (Version None)
Quarter: 2012Q3

REPORT INFORMATION
  Report Type: 
  Country: None (occurrence: None)
  Receive Date: 20120706
  Receipt Date: 20120622
  Transmission Date: 20120928
  Serious: Yes (Congenital Anomaly, Other)
  Sender: FDA-Public Use
  Company Number: DE-ROCHE-1081797

PATIENT
  Sex: Male

DRUGS (9)
  1. RITUXAN [Suspect]
     Indication: IDIOPATHIC THROMBOCYTOPENIC PURPURA
     Dosage: 25.1 TO 28.2 GESTATIONAL WEEK
     Route: 064
     Dates: start: 20100124
  2. INTRATECT [Suspect]
     Indication: IDIOPATHIC THROMBOCYTOPENIC PURPURA
     Dosage: 31.6-32.1 GESTATIONAL WEEK
     Route: 064
     Dates: start: 20100312, end: 20100314
  3. PROTAPHANE [Concomitant]
     Indication: GESTATIONAL DIABETES
     Dosage: 20 (IE/D (BIS 6))/SINCE MARCH, THE 4TH 20 IE/D (10-0-10), BEFORE THAT 6-0-0 IE/D
     Route: 064
     Dates: start: 20100217, end: 20100316
  4. DEXAMETHASONE [Concomitant]
     Indication: IDIOPATHIC THROMBOCYTOPENIC PURPURA
     Dosage: 31.6 T0 32.1 GESTATIONAL WEEK
     Route: 064
     Dates: start: 20100312, end: 20100314
  5. RITUXAN [Suspect]
     Dosage: OTHER 3 TIMES
     Route: 064
     Dates: end: 20100215
  6. OMEPRAZOLE [Suspect]
     Indication: GASTRITIS PROPHYLAXIS
     Dosage: 20 MG/DAY, 18 TO 32.3 GESTATIONAL WEEK
     Route: 064
  7. PREDNISONE [Concomitant]
     Indication: IDIOPATHIC THROMBOCYTOPENIC PURPURA
     Dosage: 14.5 - 15.2 GESTATIONAL WEEK
     Route: 064
     Dates: start: 20091112, end: 20091116
  8. FOLSAURE [Concomitant]
     Indication: PROPHYLAXIS OF NEURAL TUBE DEFECT
     Dosage: TRIMESTER: 1ST
     Route: 064
  9. PREDNISONE TAB [Concomitant]
     Indication: IDIOPATHIC THROMBOCYTOPENIC PURPURA
     Dosage: 40 MG/DAY (BIS 20)/ CHANGING DOSAGE BETWEEN 20, 35 OR 40 MG/D
     Route: 064
     Dates: start: 20091215, end: 20100316

REACTIONS (3)
  - VENTRICULAR SEPTAL DEFECT [None]
  - MATERNAL EXPOSURE TIMING UNSPECIFIED [None]
  - B-LYMPHOCYTE COUNT DECREASED [None]
